FAERS Safety Report 7953115-5 (Version None)
Quarter: 2011Q4

REPORT INFORMATION
  Report Type: 
  Country: None (occurrence: None)
  Receive Date: 20111201
  Receipt Date: 20111122
  Transmission Date: 20120403
  Serious: Yes (Disabling)
  Sender: FDA-Public Use
  Company Number: FR-ASTRAZENECA-2011SE66758

PATIENT
  Sex: Female
  Weight: 52 kg

DRUGS (3)
  1. IRESSA [Suspect]
     Indication: BRONCHIAL CARCINOMA
     Route: 048
     Dates: start: 20100601, end: 20111102
  2. CALCIT D3 [Concomitant]
  3. ATARAX [Concomitant]

REACTIONS (1)
  - DERMATOSIS [None]
